FAERS Safety Report 8802892 (Version 1)
Quarter: 2012Q4

REPORT INFORMATION
  Report Type: 
  Country: GB (occurrence: GB)
  Receive Date: 20120924
  Receipt Date: 20120924
  Transmission Date: 20130627
  Serious: Yes (Other)
  Sender: FDA-Public Use
  Company Number: GB-PFIZER INC-2012229232

PATIENT
  Age: 14 Year
  Sex: Male
  Weight: 73.5 kg

DRUGS (4)
  1. METRONIDAZOLE [Suspect]
     Indication: LIMB INJURY
     Dosage: 500 mg, unit dose
     Route: 042
     Dates: start: 20120829, end: 20120829
  2. PARACETAMOL [Concomitant]
     Indication: PAIN
     Dosage: 1 g, unit dose
     Dates: start: 20120828
  3. CODEINE [Concomitant]
     Indication: PAIN
     Dosage: 30 mg, unit dose
     Dates: start: 20120829
  4. FLUCLOXACILLIN [Concomitant]
     Indication: LIMB INJURY
     Dosage: 1 g, unit dose
     Dates: start: 20120829

REACTIONS (3)
  - Chest pain [Recovered/Resolved]
  - Tachycardia [Recovered/Resolved]
  - Hyperhidrosis [Recovered/Resolved]
